FAERS Safety Report 16309793 (Version 1)
Quarter: 2019Q2

REPORT INFORMATION
  Report Type: Report from Study
  Country: ZA (occurrence: ZA)
  Receive Date: 20190514
  Receipt Date: 20190514
  Transmission Date: 20190711
  Serious: Yes (Disabling)
  Sender: FDA-Public Use
  Company Number: ZA-SA-2019SA079966

PATIENT
  Age: 52 Year
  Sex: Female

DRUGS (6)
  1. TOUJEO [Suspect]
     Active Substance: INSULIN GLARGINE
     Dosage: BED TIME- 19 U, HS
     Dates: start: 20190203
  2. NO STUDY DRUG GIVEN [Suspect]
     Active Substance: UNSPECIFIED INGREDIENT
     Dosage: UNK
  3. ADCO-SIMVASTATIN [Concomitant]
     Active Substance: SIMVASTATIN
     Dosage: 10 MG, HS
     Dates: start: 20140218
  4. METFORMIN [Concomitant]
     Active Substance: METFORMIN HYDROCHLORIDE
     Dosage: BEFORE SUPPER- 1000 MG, BEFORE BREAKFAST- 1000 MG, BID
     Dates: start: 20140218
  5. BISOPROLOL CO UNICORN [Concomitant]
     Dosage: BEFORE BREAKFAST- 100 MG, QD
     Dates: start: 20190201
  6. AURO LOSARTAN [Concomitant]
     Dosage: BEFORE BREAKFAST- 100 MG, QD
     Dates: start: 20150218

REACTIONS (5)
  - Fatigue [Recovered/Resolved]
  - Hypoglycaemia [Recovered/Resolved]
  - Visual impairment [Not Recovered/Not Resolved]
  - Vision blurred [Recovered/Resolved]
  - Glycosylated haemoglobin increased [Unknown]

NARRATIVE: CASE EVENT DATE: 20190314
